FAERS Safety Report 20905186 (Version 1)
Quarter: 2022Q2

REPORT INFORMATION
  Report Type: Report from Study
  Country: TR (occurrence: TR)
  Receive Date: 20220602
  Receipt Date: 20220602
  Transmission Date: 20220721
  Serious: Yes (Life-Threatening, Hospitalization, Other)
  Sender: FDA-Public Use
  Company Number: TR-BAYER-2018-192475

PATIENT
  Sex: Female
  Weight: 56 kg

DRUGS (41)
  1. COPANLISIB [Suspect]
     Active Substance: COPANLISIB
     Indication: Non-Hodgkin^s lymphoma unspecified histology indolent
     Dosage: 60 MG
     Route: 042
     Dates: start: 20180604, end: 20180604
  2. COPANLISIB [Suspect]
     Active Substance: COPANLISIB
     Indication: Non-Hodgkin^s lymphoma unspecified histology indolent
     Dosage: 60 MG
     Route: 042
     Dates: start: 20180611, end: 20180611
  3. COPANLISIB [Suspect]
     Active Substance: COPANLISIB
     Indication: Non-Hodgkin^s lymphoma unspecified histology indolent
     Dosage: 60 MG
     Route: 042
     Dates: start: 20180618, end: 20180618
  4. COPANLISIB [Suspect]
     Active Substance: COPANLISIB
     Indication: Non-Hodgkin^s lymphoma unspecified histology indolent
     Dosage: 60 MG
     Route: 042
     Dates: start: 20180703, end: 20180703
  5. COPANLISIB [Suspect]
     Active Substance: COPANLISIB
     Indication: Non-Hodgkin^s lymphoma unspecified histology indolent
     Dosage: 60 MG
     Route: 042
     Dates: start: 20180711, end: 20180711
  6. COPANLISIB [Suspect]
     Active Substance: COPANLISIB
     Indication: Non-Hodgkin^s lymphoma unspecified histology indolent
     Dosage: 60 MG
     Route: 042
     Dates: start: 20180718, end: 20180718
  7. COPANLISIB [Suspect]
     Active Substance: COPANLISIB
     Indication: Non-Hodgkin^s lymphoma unspecified histology indolent
     Dosage: 60 MG
     Route: 042
     Dates: start: 20180802, end: 20180802
  8. COPANLISIB [Suspect]
     Active Substance: COPANLISIB
     Indication: Non-Hodgkin^s lymphoma unspecified histology indolent
     Dosage: 60 MG
     Route: 042
     Dates: start: 20180810, end: 20180810
  9. COPANLISIB [Suspect]
     Active Substance: COPANLISIB
     Indication: Non-Hodgkin^s lymphoma unspecified histology indolent
     Dosage: 60 MG
     Route: 042
     Dates: start: 20180817, end: 20180817
  10. COPANLISIB [Suspect]
     Active Substance: COPANLISIB
     Indication: Non-Hodgkin^s lymphoma unspecified histology indolent
     Dosage: 60 MG
     Route: 042
     Dates: start: 20180906, end: 20180916
  11. COPANLISIB [Suspect]
     Active Substance: COPANLISIB
     Indication: Non-Hodgkin^s lymphoma unspecified histology indolent
     Dosage: 60 MG
     Route: 042
     Dates: start: 20181003, end: 20181003
  12. COPANLISIB [Suspect]
     Active Substance: COPANLISIB
     Indication: Non-Hodgkin^s lymphoma unspecified histology indolent
     Dosage: 60 MG
     Route: 042
     Dates: start: 20181105, end: 20181105
  13. COPANLISIB [Suspect]
     Active Substance: COPANLISIB
     Indication: Non-Hodgkin^s lymphoma unspecified histology indolent
     Dosage: 60 MG
     Route: 042
     Dates: start: 20181112, end: 20181112
  14. COPANLISIB [Suspect]
     Active Substance: COPANLISIB
     Indication: Non-Hodgkin^s lymphoma unspecified histology indolent
     Dosage: 60 MG
     Route: 042
     Dates: start: 20181119, end: 20181119
  15. RITUXIMAB [Suspect]
     Active Substance: RITUXIMAB
     Indication: Non-Hodgkin^s lymphoma unspecified histology indolent
     Dosage: 60.8 ML, Q4WK X 6 CYCLES
     Route: 042
     Dates: start: 20180604, end: 20180604
  16. RITUXIMAB [Suspect]
     Active Substance: RITUXIMAB
     Indication: Non-Hodgkin^s lymphoma unspecified histology indolent
     Dosage: 60.8 ML, Q4WK X 6 CYCLES
     Route: 042
     Dates: start: 20180703, end: 20180703
  17. RITUXIMAB [Suspect]
     Active Substance: RITUXIMAB
     Indication: Non-Hodgkin^s lymphoma unspecified histology indolent
     Dosage: 58.5 ML, Q4WK X 6 CYCLES
     Route: 042
     Dates: start: 20180802, end: 20180802
  18. RITUXIMAB [Suspect]
     Active Substance: RITUXIMAB
     Indication: Non-Hodgkin^s lymphoma unspecified histology indolent
     Dosage: 58 ML, Q4WK X 6 CYCLES
     Route: 042
     Dates: start: 20180906, end: 20180906
  19. RITUXIMAB [Suspect]
     Active Substance: RITUXIMAB
     Indication: Non-Hodgkin^s lymphoma unspecified histology indolent
     Dosage: 58 ML, Q4WK X 6 CYCLES
     Route: 042
     Dates: start: 20181003, end: 20181003
  20. RITUXIMAB [Suspect]
     Active Substance: RITUXIMAB
     Indication: Non-Hodgkin^s lymphoma unspecified histology indolent
     Dosage: 58 ML, Q4WK X 6 CYCLES
     Route: 042
     Dates: start: 20181105, end: 20181105
  21. BENDAMUSTINE [Suspect]
     Active Substance: BENDAMUSTINE
     Indication: Non-Hodgkin^s lymphoma unspecified histology indolent
     Dosage: 58 ML, Q4WK FOR 6 CYCLES
     Route: 042
     Dates: start: 20180604, end: 20180604
  22. BENDAMUSTINE [Suspect]
     Active Substance: BENDAMUSTINE
     Indication: Non-Hodgkin^s lymphoma unspecified histology indolent
     Dosage: 58 ML, Q4WK FOR 6 CYCLES
     Route: 042
     Dates: start: 20180605, end: 20180605
  23. BENDAMUSTINE [Suspect]
     Active Substance: BENDAMUSTINE
     Indication: Non-Hodgkin^s lymphoma unspecified histology indolent
     Dosage: 58 ML, Q4WK FOR 6 CYCLES
     Route: 042
     Dates: start: 20180703, end: 20180703
  24. BENDAMUSTINE [Suspect]
     Active Substance: BENDAMUSTINE
     Indication: Non-Hodgkin^s lymphoma unspecified histology indolent
     Dosage: 58 ML, Q4WK FOR 6 CYCLES
     Route: 042
     Dates: start: 20180704, end: 20180704
  25. BENDAMUSTINE [Suspect]
     Active Substance: BENDAMUSTINE
     Indication: Non-Hodgkin^s lymphoma unspecified histology indolent
     Dosage: 56 ML, Q4WK FOR 6 CYCLES
     Route: 042
     Dates: start: 20180802, end: 20180802
  26. BENDAMUSTINE [Suspect]
     Active Substance: BENDAMUSTINE
     Indication: Non-Hodgkin^s lymphoma unspecified histology indolent
     Dosage: 56 ML, Q4WK FOR 6 CYCLES
     Route: 042
     Dates: start: 20180803, end: 20180803
  27. BENDAMUSTINE [Suspect]
     Active Substance: BENDAMUSTINE
     Indication: Non-Hodgkin^s lymphoma unspecified histology indolent
     Dosage: 56 ML, Q4WK FOR 6 CYCLES
     Route: 042
     Dates: start: 20180906, end: 20180906
  28. BENDAMUSTINE [Suspect]
     Active Substance: BENDAMUSTINE
     Indication: Non-Hodgkin^s lymphoma unspecified histology indolent
     Dosage: 56 ML, Q4WK FOR 6 CYCLES
     Route: 042
     Dates: start: 20181003, end: 20181003
  29. BENDAMUSTINE [Suspect]
     Active Substance: BENDAMUSTINE
     Indication: Non-Hodgkin^s lymphoma unspecified histology indolent
     Dosage: 56 ML, Q4WK FOR 6 CYCLES
     Route: 042
     Dates: start: 20181004, end: 20181004
  30. BENDAMUSTINE [Suspect]
     Active Substance: BENDAMUSTINE
     Indication: Non-Hodgkin^s lymphoma unspecified histology indolent
     Dosage: 55 ML, Q4WK FOR 6 CYCLES
     Route: 042
     Dates: start: 20181105, end: 20181105
  31. BENDAMUSTINE [Suspect]
     Active Substance: BENDAMUSTINE
     Indication: Non-Hodgkin^s lymphoma unspecified histology indolent
     Dosage: 55 ML, Q4WK FOR 6 CYCLES
     Route: 042
     Dates: start: 20181106, end: 20181106
  32. METOCLOPRAMIDE [Concomitant]
     Active Substance: METOCLOPRAMIDE
     Indication: Nausea
     Dosage: 1 X 10 MG
     Route: 048
     Dates: start: 20180703, end: 20180810
  33. DEXKETOPROFEN [Concomitant]
     Active Substance: DEXKETOPROFEN
     Indication: Toothache
     Dosage: 3 X 25 MG
     Route: 048
     Dates: start: 20180627, end: 20180702
  34. MEFENAMIC ACID [Concomitant]
     Active Substance: MEFENAMIC ACID
     Indication: Toothache
     Dosage: 500 MG, PRN
     Route: 048
     Dates: start: 20180630, end: 20180702
  35. VALCYTE [Concomitant]
     Active Substance: VALGANCICLOVIR HYDROCHLORIDE
     Indication: Cytomegalovirus infection
     Dosage: 2 X 450 MG
     Route: 048
     Dates: start: 20180705
  36. NEUPOGEN [Concomitant]
     Active Substance: FILGRASTIM
     Indication: Neutrophil count decreased
     Dosage: 2 X 30 MU
     Route: 042
     Dates: start: 20180808, end: 20180809
  37. NEUPOGEN [Concomitant]
     Active Substance: FILGRASTIM
     Indication: Prophylaxis
     Dosage: 1 X 30 MU
     Route: 058
     Dates: start: 20180904, end: 20180905
  38. NEUPOGEN [Concomitant]
     Active Substance: FILGRASTIM
     Indication: Neutrophil count decreased
     Dosage: 1 X 30 MU
     Route: 058
     Dates: start: 20180908, end: 20180912
  39. NEUPOGEN [Concomitant]
     Active Substance: FILGRASTIM
     Indication: Neutrophil count decreased
     Dosage: 1 X 30 MU
     Route: 058
     Dates: start: 20181005, end: 20181009
  40. KYTRIL [Concomitant]
     Active Substance: GRANISETRON HYDROCHLORIDE
     Indication: Nausea
     Dosage: 2 MG AS NEEDED
     Route: 048
  41. PANTOPRAZOLE [Concomitant]
     Active Substance: PANTOPRAZOLE
     Indication: Gastrointestinal disorder prophylaxis
     Dosage: DAILY DOSE 40 MG
     Route: 048
     Dates: start: 20181012, end: 20181024

REACTIONS (1)
  - Febrile neutropenia [Recovered/Resolved]

NARRATIVE: CASE EVENT DATE: 20181010
